FAERS Safety Report 20174018 (Version 1)
Quarter: 2021Q4

REPORT INFORMATION
  Report Type: Report from Study
  Country: US (occurrence: US)
  Receive Date: 20211213
  Receipt Date: 20211213
  Transmission Date: 20220303
  Serious: Yes (Hospitalization, Other)
  Sender: FDA-Public Use
  Company Number: US-CIPLA LTD.-2021US08010

PATIENT

DRUGS (1)
  1. WARFARIN [Suspect]
     Active Substance: WARFARIN
     Indication: Atrial fibrillation
     Dosage: UNK
     Route: 065

REACTIONS (6)
  - Brain herniation [Unknown]
  - Haemorrhagic stroke [Unknown]
  - Subarachnoid haemorrhage [Unknown]
  - Anticoagulation drug level above therapeutic [Unknown]
  - Cerebral haemorrhage [Unknown]
  - Intraventricular haemorrhage [Unknown]
